FAERS Safety Report 5843461-3 (Version None)
Quarter: 2008Q3

REPORT INFORMATION
  Report Type: 
  Country: None (occurrence: None)
  Receive Date: 20080813
  Receipt Date: 20080807
  Transmission Date: 20090109
  Serious: Yes (Hospitalization)
  Sender: FDA-Public Use
  Company Number: US-BRISTOL-MYERS SQUIBB COMPANY-14265540

PATIENT
  Age: 65 Year
  Sex: Male
  Weight: 155 kg

DRUGS (2)
  1. DASATINIB [Suspect]
     Indication: LEIOMYOSARCOMA
     Dosage: INTERRUPTED 07-JUL-2008
     Route: 048
     Dates: start: 20080306
  2. ALLOPURINOL [Suspect]

REACTIONS (2)
  - DEHYDRATION [None]
  - RASH [None]
